FAERS Safety Report 10866969 (Version 3)
Quarter: 2015Q2

REPORT INFORMATION
  Report Type: Spontaneous
  Country: US (occurrence: US)
  Receive Date: 20150225
  Receipt Date: 20150527
  Transmission Date: 20150821
  Serious: No
  Sender: FDA-Public Use
  Company Number: US-PFIZER INC-2015069556

PATIENT
  Age: 70 Year
  Sex: Female

DRUGS (1)
  1. EFFEXOR XR [Suspect]
     Active Substance: VENLAFAXINE HYDROCHLORIDE
     Indication: HORMONE LEVEL ABNORMAL
     Dosage: 37.5 MG, 1X/DAY

REACTIONS (2)
  - Arthralgia [Recovered/Resolved]
  - Malaise [Recovered/Resolved]
